FAERS Safety Report 6918602-7 (Version None)
Quarter: 2010Q3

REPORT INFORMATION
  Report Type: 
  Country: None (occurrence: None)
  Receive Date: 20100811
  Receipt Date: 20100727
  Transmission Date: 20110219
  Serious: Yes (Other)
  Sender: FDA-Public Use
  Company Number: US-JNJFOC-20100604700

PATIENT
  Sex: Female

DRUGS (5)
  1. RYZOLT [Suspect]
     Indication: PAIN IN EXTREMITY
     Route: 065
  2. ARICEPT [Concomitant]
  3. CELEXA [Concomitant]
  4. NEXIUM [Concomitant]
  5. PLAVIX [Concomitant]

REACTIONS (2)
  - HALLUCINATION [None]
  - PSYCHOTIC BEHAVIOUR [None]
